FAERS Safety Report 7203968-3 (Version None)
Quarter: 2010Q4

REPORT INFORMATION
  Report Type: 
  Country: None (occurrence: None)
  Receive Date: 20101230
  Receipt Date: 20101220
  Transmission Date: 20110411
  Serious: Yes (Other)
  Sender: FDA-Public Use
  Company Number: CA-ELI_LILLY_AND_COMPANY-CA201012005506

PATIENT
  Age: 62 Year
  Sex: Female

DRUGS (8)
  1. CYMBALTA [Suspect]
     Indication: DIABETIC NEUROPATHY
     Dosage: 60 MG, DAILY (1/D)
     Route: 048
     Dates: start: 20100601
  2. GABAPENTIN [Concomitant]
  3. FENTANYL-100 [Concomitant]
  4. METFORMIN [Concomitant]
  5. MELOXICAM [Concomitant]
  6. VITAMIN D [Concomitant]
  7. ELTROXIN [Concomitant]
  8. OXYCET [Concomitant]
     Indication: BREAKTHROUGH PAIN

REACTIONS (5)
  - GASTRIC DISORDER [None]
  - INTRAOCULAR PRESSURE INCREASED [None]
  - PRURITUS [None]
  - RASH [None]
  - SOMNOLENCE [None]
